FAERS Safety Report 21383950 (Version 1)
Quarter: 2022Q3

REPORT INFORMATION
  Report Type: Spontaneous
  Country: US (occurrence: US)
  Receive Date: 20220928
  Receipt Date: 20220928
  Transmission Date: 20221027
  Serious: Yes (Other)
  Sender: FDA-Public Use
  Company Number: US-MALLINCKRODT-T202203794

PATIENT
  Sex: Male

DRUGS (1)
  1. H.P. ACTHAR [Suspect]
     Active Substance: CORTICOTROPIN
     Indication: Iridocyclitis
     Dosage: 1 MILLILITER (80 UNITS), TWICE A WEEK
     Route: 058
     Dates: start: 202206

REACTIONS (4)
  - COVID-19 [Not Recovered/Not Resolved]
  - Eye inflammation [Unknown]
  - Ocular discomfort [Unknown]
  - Dyspnoea [Unknown]

NARRATIVE: CASE EVENT DATE: 20220101
